FAERS Safety Report 24615034 (Version 1)
Quarter: 2024Q4

REPORT INFORMATION
  Report Type: Spontaneous
  Country: PL (occurrence: PL)
  Receive Date: 20241113
  Receipt Date: 20241113
  Transmission Date: 20250114
  Serious: Yes (Life-Threatening, Hospitalization, Other)
  Sender: PERRIGO
  Company Number: PL-MLMSERVICE-20241031-PI246431-00029-2

PATIENT
  Age: 66 Year
  Sex: Female

DRUGS (2)
  1. ACETAMINOPHEN [Suspect]
     Active Substance: ACETAMINOPHEN
     Indication: Suicide attempt
     Dosage: UNKNOWN, UNKNOWN
     Route: 048
     Dates: start: 202405
  2. ZOLPIDEM TARTRATE [Suspect]
     Active Substance: ZOLPIDEM TARTRATE
     Indication: Suicide attempt
     Dosage: 20 TABLETS (200 MG) WERE MISSING FROM THE PACKAGES
     Route: 048
     Dates: start: 202405

REACTIONS (10)
  - Suicide attempt [Recovering/Resolving]
  - Loss of consciousness [Recovering/Resolving]
  - Unresponsive to stimuli [Recovering/Resolving]
  - Bradypnoea [Recovering/Resolving]
  - Hypotension [Recovering/Resolving]
  - Coma [Recovering/Resolving]
  - Miosis [Recovering/Resolving]
  - Pupil fixed [Recovering/Resolving]
  - Toxicity to various agents [Recovering/Resolving]
  - Intentional overdose [Recovering/Resolving]

NARRATIVE: CASE EVENT DATE: 20240501
